FAERS Safety Report 6420931-0 (Version None)
Quarter: 2009Q4

REPORT INFORMATION
  Report Type: 
  Country: None (occurrence: None)
  Receive Date: 20091030
  Receipt Date: 20091022
  Transmission Date: 20100525
  Serious: Yes (Other)
  Sender: FDA-Public Use
  Company Number: SE-ASTRAZENECA-2009SE21753

PATIENT
  Age: 63 Year
  Sex: Female

DRUGS (7)
  1. CRESTOR [Suspect]
     Route: 048
     Dates: end: 20090401
  2. SELOKEN ZOC [Concomitant]
     Route: 048
  3. INDERAL [Concomitant]
     Route: 065
  4. IMDUR [Concomitant]
     Route: 048
  5. PERSANTINE [Concomitant]
     Route: 065
  6. LIVIAL [Concomitant]
  7. TROMBYL [Concomitant]
     Route: 065

REACTIONS (1)
  - AMYOTROPHIC LATERAL SCLEROSIS [None]
